FAERS Safety Report 4484894-X (Version None)
Quarter: 2004Q3

REPORT INFORMATION
  Report Type: 
  Country: None (occurrence: None)
  Receive Date: 20040921
  Receipt Date: 20030827
  Transmission Date: 20050211
  Serious: Yes (Other)
  Sender: FDA-Public Use
  Company Number: 163-20785-03090011

PATIENT
  Age: 59 Year
  Sex: Male

DRUGS (1)
  1. THALOMID [Suspect]
     Indication: METASTATIC RENAL CELL CARCINOMA
     Dosage: 400 MG, DAILY, ORAL
     Route: 048
     Dates: start: 20020703, end: 20030801

REACTIONS (1)
  - THROMBOSIS [None]
